FAERS Safety Report 24218603 (Version 1)
Quarter: 2024Q3

REPORT INFORMATION
  Report Type: Spontaneous
  Country: FR (occurrence: FR)
  Receive Date: 20240816
  Receipt Date: 20240816
  Transmission Date: 20241017
  Serious: Yes (Other)
  Sender: PFIZER
  Company Number: None

PATIENT
  Age: 72 Year
  Sex: Male
  Weight: 64 kg

DRUGS (6)
  1. OXALIPLATIN [Suspect]
     Active Substance: OXALIPLATIN
     Indication: Gastrointestinal neoplasm
     Dosage: 140 MG, CYCLIC
     Route: 042
     Dates: start: 20240220, end: 20240702
  2. FLUOROURACIL [Suspect]
     Active Substance: FLUOROURACIL
     Indication: Gastrointestinal neoplasm
     Dosage: 4.5 G, CYCLIC
     Route: 042
     Dates: start: 20240220
  3. METHYLPREDNISOLONE SODIUM SUCCINATE [Suspect]
     Active Substance: METHYLPREDNISOLONE SODIUM SUCCINATE
     Indication: Premedication
     Dosage: 80 MG, CYCLIC
     Route: 042
     Dates: start: 20240220
  4. LEUCOVORIN CALCIUM [Suspect]
     Active Substance: LEUCOVORIN CALCIUM
     Indication: Gastrointestinal neoplasm
     Dosage: 650 MG, CYCLIC
     Route: 042
     Dates: start: 20240220
  5. OPDIVO [Suspect]
     Active Substance: NIVOLUMAB
     Indication: Gastrointestinal neoplasm
     Dosage: 240 MG, CYCLIC
     Route: 042
     Dates: start: 20240220, end: 20240611
  6. ONDANSETRON HYDROCHLORIDE [Suspect]
     Active Substance: ONDANSETRON HYDROCHLORIDE
     Indication: Premedication
     Dosage: 8 MG, CYCLIC
     Route: 042
     Dates: start: 20240220

REACTIONS (3)
  - Skin exfoliation [Not Recovered/Not Resolved]
  - Erythema [Not Recovered/Not Resolved]
  - Off label use [Unknown]

NARRATIVE: CASE EVENT DATE: 20240220
